FAERS Safety Report 23371609 (Version 6)
Quarter: 2024Q2

REPORT INFORMATION
  Report Type: Spontaneous
  Country: CA (occurrence: CA)
  Receive Date: 20240105
  Receipt Date: 20240612
  Transmission Date: 20240716
  Serious: Yes (Death, Other)
  Sender: FDA-Public Use
  Company Number: CA-PFIZER INC-202300444437

PATIENT
  Age: 54 Year
  Sex: Female
  Weight: 72 kg

DRUGS (15)
  1. RUXIENCE [Suspect]
     Active Substance: RITUXIMAB-PVVR
     Indication: Granulomatosis with polyangiitis
     Dosage: 1 G, DAY 1, DAY 15
     Route: 042
     Dates: start: 20220922, end: 20221005
  2. RUXIENCE [Suspect]
     Active Substance: RITUXIMAB-PVVR
     Dosage: 1000 MG, DAY 1 AND DAY 15
     Route: 042
     Dates: start: 20231213
  3. RUXIENCE [Suspect]
     Active Substance: RITUXIMAB-PVVR
     Dosage: 1000 MG, DAY 1 AND DAY 15
     Route: 042
     Dates: start: 20231230
  4. RUXIENCE [Suspect]
     Active Substance: RITUXIMAB-PVVR
     Dosage: 1000 MG, DAY 1 AND DAY 15
     Route: 042
     Dates: start: 20231230
  5. RUXIENCE [Suspect]
     Active Substance: RITUXIMAB-PVVR
     Dosage: 1000 MG, DAY 1 AND DAY 15
     Route: 042
     Dates: start: 202401
  6. AVACOPAN [Concomitant]
     Active Substance: AVACOPAN
     Indication: Granulomatosis with polyangiitis
     Dosage: 25 MG
  7. AVACOPAN [Concomitant]
     Active Substance: AVACOPAN
     Dosage: 30 MG X2
  8. PREDNISONE [Concomitant]
     Active Substance: PREDNISONE
     Indication: Granulomatosis with polyangiitis
     Dosage: 30 MG. 2X
  9. PREDNISONE [Concomitant]
     Active Substance: PREDNISONE
     Dosage: 25 MG
  10. SEPTRA [Concomitant]
     Active Substance: SULFAMETHOXAZOLE\TRIMETHOPRIM
     Dosage: UNK
  11. CHOLECALCIFEROL [Concomitant]
     Active Substance: CHOLECALCIFEROL
     Dosage: UNK
  12. HIZENTRA [Concomitant]
     Active Substance: HUMAN IMMUNOGLOBULIN G
     Indication: Granulomatosis with polyangiitis
     Route: 060
  13. FLUCONAZOLE [Concomitant]
     Active Substance: FLUCONAZOLE
  14. ERTAPENEM [Concomitant]
     Active Substance: ERTAPENEM
  15. CIPROFLOXACIN [Concomitant]
     Active Substance: CIPROFLOXACIN

REACTIONS (22)
  - Cardiac arrest [Fatal]
  - Pneumothorax [Unknown]
  - Critical illness [Unknown]
  - Pseudomonas infection [Unknown]
  - Raoultella ornithinolytica infection [Unknown]
  - Serratia infection [Unknown]
  - Seizure [Unknown]
  - Hypoxia [Unknown]
  - Bacterial infection [Unknown]
  - Diarrhoea [Unknown]
  - Muscle tension dysphonia [Unknown]
  - Dyspnoea [Unknown]
  - Abdominal discomfort [Unknown]
  - Aphonia [Unknown]
  - Cough [Unknown]
  - Fatigue [Unknown]
  - Insomnia [Unknown]
  - Irritable bowel syndrome [Unknown]
  - Off label use [Unknown]
  - Fungal infection [Unknown]
  - Cytomegalovirus infection [Unknown]
  - Staphylococcal infection [Unknown]

NARRATIVE: CASE EVENT DATE: 20230101
